FAERS Safety Report 8018650-2 (Version None)
Quarter: 2012Q1

REPORT INFORMATION
  Report Type: 
  Country: None (occurrence: None)
  Receive Date: 20120103
  Receipt Date: 20120103
  Transmission Date: 20120608
  Serious: Yes (Life-Threatening, Hospitalization)
  Sender: FDA-Public Use
  Company Number: None

PATIENT
  Age: 56 Year
  Sex: Male
  Weight: 81.646 kg

DRUGS (1)
  1. LISINOPRIL AND HYDROCHLOROTHIAZIDE [Suspect]
     Indication: HYPERTENSION
     Dosage: ONE TAB
     Route: 048
     Dates: start: 20060915, end: 20111228

REACTIONS (8)
  - DRUG HYPERSENSITIVITY [None]
  - DROOLING [None]
  - SWOLLEN TONGUE [None]
  - DYSPHAGIA [None]
  - SALIVARY HYPERSECRETION [None]
  - RETCHING [None]
  - APHASIA [None]
  - LIP SWELLING [None]
